FAERS Safety Report 7454608-X (Version None)
Quarter: 2011Q2

REPORT INFORMATION
  Report Type: 
  Country: None (occurrence: None)
  Receive Date: 20110425
  Receipt Date: 20110412
  Transmission Date: 20111010
  Serious: Yes (Hospitalization)
  Sender: FDA-Public Use
  Company Number: 031142

PATIENT

DRUGS (1)
  1. LACOSAMIDE [Suspect]
     Dosage: (200 MG BID INTRAVENOUS), (150 MG TID INTRAVENOUS)
     Route: 042

REACTIONS (3)
  - CONVULSION [None]
  - LOSS OF CONSCIOUSNESS [None]
  - PRODUCT QUALITY ISSUE [None]
